FAERS Safety Report 7071968-2 (Version None)
Quarter: 2010Q4

REPORT INFORMATION
  Report Type: 
  Country: None (occurrence: None)
  Receive Date: 20101029
  Receipt Date: 20091111
  Transmission Date: 20110411
  Serious: No
  Sender: FDA-Public Use
  Company Number: A0816524A

PATIENT
  Age: 70 Year
  Sex: Male

DRUGS (7)
  1. ADVAIR DISKUS 100/50 [Suspect]
     Indication: CHRONIC OBSTRUCTIVE PULMONARY DISEASE
     Route: 055
     Dates: start: 20081101
  2. VITAMINS [Concomitant]
  3. SPIRIVA [Concomitant]
  4. NEXIUM [Concomitant]
  5. VYTORIN [Concomitant]
  6. CARVEDILOL [Concomitant]
  7. UNKNOWN MEDICATION [Concomitant]

REACTIONS (1)
  - DYSPHONIA [None]
